FAERS Safety Report 7902105-7 (Version None)
Quarter: 2011Q4

REPORT INFORMATION
  Report Type: 
  Country: None (occurrence: None)
  Receive Date: 20111107
  Receipt Date: 20111107
  Transmission Date: 20120403
  Serious: No
  Sender: FDA-Public Use
  Company Number: None

PATIENT
  Sex: Female
  Weight: 57.7 kg

DRUGS (1)
  1. INTRON A [Suspect]
     Dosage: 72.6 MU
     Dates: end: 20111031

REACTIONS (5)
  - FATIGUE [None]
  - URINARY TRACT INFECTION [None]
  - NAUSEA [None]
  - NEUTROPENIA [None]
  - ASTHENIA [None]
